FAERS Safety Report 15800335 (Version 2)
Quarter: 2019Q4

REPORT INFORMATION
  Report Type: Spontaneous
  Country: US (occurrence: US)
  Receive Date: 20190108
  Receipt Date: 20191213
  Transmission Date: 20200122
  Serious: No
  Sender: FDA-Public Use
  Company Number: US-VIFOR (INTERNATIONAL) INC.-VIT-2019-00088

PATIENT
  Age: 55 Year
  Sex: Female

DRUGS (11)
  1. ALBUTEROL SULFATE. [Concomitant]
     Active Substance: ALBUTEROL SULFATE
  2. AMITRIPTYLINE HCL [Concomitant]
     Active Substance: AMITRIPTYLINE
  3. CARVEDILOL. [Concomitant]
     Active Substance: CARVEDILOL
  4. LANTUS SOLOSTAR [Concomitant]
     Active Substance: INSULIN GLARGINE
  5. RENVELA [Concomitant]
     Active Substance: SEVELAMER CARBONATE
  6. VELTASSA [Suspect]
     Active Substance: PATIROMER
     Indication: HYPERKALAEMIA
     Route: 048
     Dates: start: 20181214, end: 20191120
  7. MIRALAX [Concomitant]
     Active Substance: POLYETHYLENE GLYCOL 3350
  8. CLOPIDOGREL BISULFATE. [Concomitant]
     Active Substance: CLOPIDOGREL BISULFATE
  9. VELTASSA [Suspect]
     Active Substance: PATIROMER
     Route: 048
     Dates: start: 20191120
  10. ASPIRIN 81 [Concomitant]
     Active Substance: ASPIRIN
  11. NOVOLOG MIX 70/30 [Concomitant]
     Active Substance: INSULIN ASPART

REACTIONS (3)
  - Blood potassium increased [Unknown]
  - Faeces hard [Unknown]
  - Inappropriate schedule of product administration [Unknown]

NARRATIVE: CASE EVENT DATE: 2019
